FAERS Safety Report 7030198-0 (Version None)
Quarter: 2010Q4

REPORT INFORMATION
  Report Type: 
  Country: None (occurrence: None)
  Receive Date: 20101006
  Receipt Date: 20100928
  Transmission Date: 20110411
  Serious: Yes (Hospitalization)
  Sender: FDA-Public Use
  Company Number: GB-TEVA-250230ISR

PATIENT
  Age: 60 Year
  Sex: Male
  Weight: 54.2 kg

DRUGS (1)
  1. TAMSULOSIN [Suspect]
     Indication: URINARY RETENTION
     Route: 048
     Dates: start: 20100629, end: 20100720

REACTIONS (3)
  - HYPERGLYCAEMIA [None]
  - HYPEROSMOLAR STATE [None]
  - WEIGHT DECREASED [None]
